FAERS Safety Report 10038752 (Version 5)
Quarter: 2014Q3

REPORT INFORMATION
  Report Type: Spontaneous
  Country: US (occurrence: US)
  Receive Date: 20140326
  Receipt Date: 20140722
  Transmission Date: 20150326
  Serious: No
  Sender: FDA-Public Use
  Company Number: US-JNJFOC-20140218082

PATIENT
  Age: 25 Year
  Sex: Male
  Weight: 84.37 kg

DRUGS (4)
  1. INVEGA SUSTENNA [Suspect]
     Active Substance: PALIPERIDONE PALMITATE
     Indication: SCHIZOAFFECTIVE DISORDER
     Route: 030
  2. INVEGA SUSTENNA [Suspect]
     Active Substance: PALIPERIDONE PALMITATE
     Indication: SCHIZOAFFECTIVE DISORDER
     Route: 030
     Dates: start: 20111211, end: 2012
  3. INVEGA SUSTENNA [Suspect]
     Active Substance: PALIPERIDONE PALMITATE
     Indication: SCHIZOAFFECTIVE DISORDER
     Route: 030
     Dates: start: 2012
  4. INVEGA SUSTENNA [Suspect]
     Active Substance: PALIPERIDONE PALMITATE
     Indication: SCHIZOAFFECTIVE DISORDER
     Route: 030
     Dates: start: 2012, end: 2012

REACTIONS (9)
  - Dysstasia [Recovering/Resolving]
  - Hypoaesthesia [Recovering/Resolving]
  - Hypersomnia [Recovered/Resolved]
  - Sexual dysfunction [Recovering/Resolving]
  - Jaw disorder [Not Recovered/Not Resolved]
  - Dizziness [Recovering/Resolving]
  - Tremor [Recovering/Resolving]
  - Salivary hypersecretion [Recovering/Resolving]
  - Blood urine present [Recovering/Resolving]

NARRATIVE: CASE EVENT DATE: 201112
